FAERS Safety Report 4430768-X (Version None)
Quarter: 2004Q3

REPORT INFORMATION
  Report Type: 
  Country: None (occurrence: None)
  Receive Date: 20040818
  Receipt Date: 20040802
  Transmission Date: 20050211
  Serious: Yes (Death)
  Sender: FDA-Public Use
  Company Number: DE_040814059

PATIENT
  Sex: Male

DRUGS (2)
  1. GEMCITABINE HYDROCHLORIDE-IV (GEMCITABINE) [Suspect]
     Indication: PANCREATIC CARCINOMA
     Dosage: 800 MG/M2 OTHER
     Route: 050
  2. MITOMYCIN-C BULK POWDER [Concomitant]

REACTIONS (2)
  - DYSPNOEA [None]
  - HAEMOLYTIC URAEMIC SYNDROME [None]
